FAERS Safety Report 4795290-X (Version None)
Quarter: 2005Q4

REPORT INFORMATION
  Report Type: 
  Country: None (occurrence: None)
  Receive Date: 20051012
  Receipt Date: 20050127
  Transmission Date: 20060501
  Serious: Yes (Other)
  Sender: FDA-Public Use
  Company Number: US-GLAXOSMITHKLINE-A0542658A

PATIENT
  Sex: Female

DRUGS (3)
  1. WELLBUTRIN [Suspect]
     Indication: MAJOR DEPRESSION
     Route: 048
     Dates: start: 20010101, end: 20050701
  2. LEXAPRO [Concomitant]
  3. AZMACORT [Concomitant]

REACTIONS (2)
  - DRUG EXPOSURE DURING PREGNANCY [None]
  - ELECTROCARDIOGRAM QT PROLONGED [None]
